FAERS Safety Report 23220207 (Version 2)
Quarter: 2023Q4

REPORT INFORMATION
  Report Type: Report from Study
  Country: JP (occurrence: JP)
  Receive Date: 20231123
  Receipt Date: 20231124
  Transmission Date: 20240110
  Serious: Yes (Death)
  Sender: FDA-Public Use
  Company Number: JP-ABBVIE-20K-087-3244211-00

PATIENT
  Age: 55 Year
  Sex: Male
  Weight: 61 kg

DRUGS (2)
  1. CARBIDOPA\LEVODOPA [Suspect]
     Active Substance: CARBIDOPA\LEVODOPA
     Indication: Parkinson^s disease
     Dosage: MD: 3.0 ML?CD: 4.0 ML/HR FOR 16 HOURS?ED: 1.0 ML/UNIT FOR 3 HOURS
     Route: 050
     Dates: start: 20181213, end: 20200115
  2. CARBIDOPA\LEVODOPA [Suspect]
     Active Substance: CARBIDOPA\LEVODOPA
     Dosage: MD: 3.0 ML?CD: 4.0 ML/HR FOR 16 HOURS?ED: 1.0 ML/UNIT FOR 3 HOURS
     Route: 050
     Dates: start: 20200123, end: 20231121

REACTIONS (4)
  - Death [Fatal]
  - Posture abnormal [Unknown]
  - Discomfort [Unknown]
  - Nausea [Recovered/Resolved]

NARRATIVE: CASE EVENT DATE: 20200114
